FAERS Safety Report 4572143-3 (Version None)
Quarter: 2005Q1

REPORT INFORMATION
  Report Type: 
  Country: None (occurrence: None)
  Receive Date: 20050202
  Receipt Date: 20050117
  Transmission Date: 20050727
  Serious: Yes (Death, Other)
  Sender: FDA-Public Use
  Company Number: US_980402372

PATIENT
  Age: 80 Year
  Sex: Male
  Weight: 80 kg

DRUGS (3)
  1. HUMULIN U [Suspect]
     Indication: DIABETES MELLITUS
     Dosage: 10 U/DAY
  2. HUMULIN L [Suspect]
     Indication: DIABETES MELLITUS
     Dosage: 28 U/DAY
     Dates: end: 19990708
  3. HUMULIN R [Suspect]
     Indication: DIABETES MELLITUS
     Dosage: 3 U DAY

REACTIONS (4)
  - BLOOD GLUCOSE INCREASED [None]
  - CARDIAC DISORDER [None]
  - HYPOGLYCAEMIA [None]
  - MYOCARDIAL INFARCTION [None]
